FAERS Safety Report 7582217-0 (Version None)
Quarter: 2011Q2

REPORT INFORMATION
  Report Type: 
  Country: None (occurrence: None)
  Receive Date: 20110622
  Receipt Date: 20110610
  Transmission Date: 20111010
  Serious: Yes (Hospitalization)
  Sender: FDA-Public Use
  Company Number: WAES 0904USA02889

PATIENT
  Age: 69 Year
  Sex: Male

DRUGS (15)
  1. ZOVIRAX [Concomitant]
  2. AMLODIPINE [Concomitant]
  3. ASPIRIN [Concomitant]
  4. LAXOBERON [Concomitant]
  5. VFEND [Concomitant]
  6. CAP VORINOSTAT [Suspect]
     Indication: MULTIPLE MYELOMA
     Dosage: 400 MG, DAILY, PO; 200 MG, DAILY, PO
     Route: 048
     Dates: start: 20090330
  7. CAP VORINOSTAT [Suspect]
     Indication: MULTIPLE MYELOMA
     Dosage: 400 MG, DAILY, PO; 200 MG, DAILY, PO
     Route: 048
     Dates: start: 20090515, end: 20090602
  8. CAP VORINOSTAT [Suspect]
     Indication: MULTIPLE MYELOMA
     Dosage: 400 MG, DAILY, PO; 200 MG, DAILY, PO
     Route: 048
     Dates: start: 20090622
  9. CAP VORINOSTAT [Suspect]
     Indication: MULTIPLE MYELOMA
     Dosage: 400 MG, DAILY, PO; 200 MG, DAILY, PO
     Route: 048
     Dates: start: 20090427, end: 20090507
  10. CAP VORINOSTAT [Suspect]
     Indication: MULTIPLE MYELOMA
     Dosage: 400 MG, DAILY, PO; 200 MG, DAILY, PO
     Route: 048
     Dates: start: 20090608
  11. REDOMEX [Concomitant]
  12. VELCADE [Suspect]
     Dosage: 2.29 MG/M2,; 1.0 MG/M2; 0.7 MG/M2;
     Dates: start: 20090608
  13. VELCADE [Suspect]
     Dosage: 2.29 MG/M2,; 1.0 MG/M2; 0.7 MG/M2;
     Dates: start: 20090515, end: 20090602
  14. VELCADE [Suspect]
     Dosage: 2.29 MG/M2,; 1.0 MG/M2; 0.7 MG/M2;
     Dates: start: 20090330
  15. VELCADE [Suspect]
     Dosage: 2.29 MG/M2,; 1.0 MG/M2; 0.7 MG/M2;
     Dates: start: 20090427, end: 20090507

REACTIONS (15)
  - LEUKOPENIA [None]
  - HYPERGLYCAEMIA [None]
  - HYPOVOLAEMIA [None]
  - THROMBOCYTOPENIA [None]
  - WOUND [None]
  - OEDEMA PERIPHERAL [None]
  - ANAEMIA [None]
  - PERIORBITAL HAEMATOMA [None]
  - ASTHENIA [None]
  - MUSCULAR WEAKNESS [None]
  - FALL [None]
  - RENAL FAILURE ACUTE [None]
  - INSOMNIA [None]
  - DIARRHOEA [None]
  - HYPOKALAEMIA [None]
